FAERS Safety Report 19801200 (Version 1)
Quarter: 2021Q3

REPORT INFORMATION
  Report Type: Spontaneous
  Country: IN (occurrence: IN)
  Receive Date: 20210907
  Receipt Date: 20210907
  Transmission Date: 20211014
  Serious: Yes (Death, Other)
  Sender: FDA-Public Use
  Company Number: IN-PAIPHARMA-2021-IN-000178

PATIENT
  Age: 58 Year
  Sex: Male

DRUGS (4)
  1. NORADRENALINE [Concomitant]
     Active Substance: NOREPINEPHRINE
  2. FENTANYL. [Suspect]
     Active Substance: FENTANYL
     Indication: PRODUCT USED FOR UNKNOWN INDICATION
     Route: 042
  3. VASOPRESSIN. [Suspect]
     Active Substance: VASOPRESSIN
     Indication: HYPOTENSION
     Dosage: 40 UNITS
  4. LACTULOSE (NON?SPECIFIC) [Suspect]
     Active Substance: LACTULOSE
     Indication: MULTIPLE ORGAN DYSFUNCTION SYNDROME
     Dosage: 15 ML

REACTIONS (1)
  - Hypermagnesaemia [Fatal]
